FAERS Safety Report 6000063-6 (Version None)
Quarter: 2008Q4

REPORT INFORMATION
  Report Type: 
  Country: None (occurrence: None)
  Receive Date: 20081215
  Receipt Date: 20081208
  Transmission Date: 20090506
  Serious: Yes (Disabling)
  Sender: FDA-Public Use
  Company Number: B0546256A

PATIENT
  Age: 1 Year
  Sex: Male

DRUGS (1)
  1. AUGMENTIN '125' [Suspect]
     Indication: EAR INFECTION
     Dosage: 3.5ML TWICE PER DAY
     Route: 048
     Dates: start: 20081102, end: 20081105

REACTIONS (3)
  - DERMATITIS [None]
  - SKIN TOXICITY [None]
  - URTICARIA [None]
